FAERS Safety Report 19612981 (Version 21)
Quarter: 2024Q2

REPORT INFORMATION
  Report Type: Spontaneous
  Country: CA (occurrence: CA)
  Receive Date: 20210727
  Receipt Date: 20240606
  Transmission Date: 20240716
  Serious: Yes (Hospitalization, Other)
  Sender: FDA-Public Use
  Company Number: CA-CELLTRION INC.-2019CA028591

PATIENT

DRUGS (37)
  1. INFLECTRA [Suspect]
     Active Substance: INFLIXIMAB-DYYB
     Indication: Crohn^s disease
     Dosage: 5 MG/KG, EVERY 8 WEEKS, (0, 2, 6 WEEKS THEN EVERY 8 WEEKS)
     Route: 042
     Dates: start: 20191101
  2. INFLECTRA [Suspect]
     Active Substance: INFLIXIMAB-DYYB
     Dosage: 5 MG/KG, 0, 2, 6 WEEKS THEN EVERY 8 WEEKS
     Route: 042
     Dates: start: 20191216
  3. INFLECTRA [Suspect]
     Active Substance: INFLIXIMAB-DYYB
     Dosage: 5 MG/KG, 0, 2, 6 WEEKS THEN EVERY 8 WEEKS
     Route: 042
     Dates: start: 20200211
  4. INFLECTRA [Suspect]
     Active Substance: INFLIXIMAB-DYYB
     Dosage: 10 MG/KG, EVERY 8 WEEKS
     Route: 042
     Dates: start: 20200409
  5. INFLECTRA [Suspect]
     Active Substance: INFLIXIMAB-DYYB
     Dosage: 10 MG/KG, EVERY 8 WEEKS
     Route: 042
     Dates: start: 20200604
  6. INFLECTRA [Suspect]
     Active Substance: INFLIXIMAB-DYYB
     Dosage: 10 MG/KG, EVERY 8 WEEKS
     Route: 042
     Dates: start: 20200806, end: 20200806
  7. INFLECTRA [Suspect]
     Active Substance: INFLIXIMAB-DYYB
     Dosage: 10 MG/KG, EVERY 8 WEEKS
     Route: 042
     Dates: start: 20200806, end: 20200806
  8. INFLECTRA [Suspect]
     Active Substance: INFLIXIMAB-DYYB
     Dosage: 10 MG/KG, EVERY 4 WEEKS
     Route: 042
     Dates: start: 20200911
  9. INFLECTRA [Suspect]
     Active Substance: INFLIXIMAB-DYYB
     Dosage: 10 MG/KG, EVERY 4 WEEKS
     Route: 042
     Dates: start: 20201202, end: 20201202
  10. INFLECTRA [Suspect]
     Active Substance: INFLIXIMAB-DYYB
     Dosage: 10 MG/KG, EVERY 4 WEEKS
     Route: 042
     Dates: start: 20201230
  11. INFLECTRA [Suspect]
     Active Substance: INFLIXIMAB-DYYB
     Dosage: 600 MG
     Route: 042
     Dates: start: 20210713
  12. INFLECTRA [Suspect]
     Active Substance: INFLIXIMAB-DYYB
     Dosage: 10 MG/KG, EVERY 4 WEEKS
     Route: 042
     Dates: start: 20210811
  13. INFLECTRA [Suspect]
     Active Substance: INFLIXIMAB-DYYB
     Dosage: 10 MG/KG, EVERY 6 WEEKS
     Route: 042
     Dates: start: 20210923
  14. INFLECTRA [Suspect]
     Active Substance: INFLIXIMAB-DYYB
     Dosage: 10 MG/KG, EVERY 4 WEEKS
     Route: 042
     Dates: start: 20211103
  15. INFLECTRA [Suspect]
     Active Substance: INFLIXIMAB-DYYB
     Dosage: 600 MG (DOSE AVAILABLE IN THE CLINIC WAS  JUST 600 MG)
     Route: 042
     Dates: start: 20211215
  16. INFLECTRA [Suspect]
     Active Substance: INFLIXIMAB-DYYB
     Dosage: 10 MG/KG, EVERY 4 WEEKS
     Route: 042
     Dates: start: 20220209
  17. INFLECTRA [Suspect]
     Active Substance: INFLIXIMAB-DYYB
     Dosage: 10 MG/KG, EVERY 4 WEEKS
     Route: 042
     Dates: start: 20220324
  18. INFLECTRA [Suspect]
     Active Substance: INFLIXIMAB-DYYB
     Dosage: 10 MG/KG, EVERY 4 WEEKS
     Route: 042
     Dates: start: 20220504
  19. INFLECTRA [Suspect]
     Active Substance: INFLIXIMAB-DYYB
     Dosage: 10 MG/KG, EVERY 6 WEEKS
     Route: 042
     Dates: start: 20220618
  20. INFLECTRA [Suspect]
     Active Substance: INFLIXIMAB-DYYB
     Dosage: 10 MG/KG, EVERY 6 WEEKS
     Route: 042
     Dates: start: 20220618
  21. INFLECTRA [Suspect]
     Active Substance: INFLIXIMAB-DYYB
     Dosage: 10 MG/KG, EVERY 6 WEEKS
     Route: 042
     Dates: start: 20220728
  22. INFLECTRA [Suspect]
     Active Substance: INFLIXIMAB-DYYB
     Dosage: 10 MG/KG, EVERY 6 WEEKS
     Route: 042
     Dates: start: 20220919
  23. INFLECTRA [Suspect]
     Active Substance: INFLIXIMAB-DYYB
     Dosage: 10 MG/KG, EVERY 6 WEEKS
     Route: 042
     Dates: start: 20220919
  24. INFLECTRA [Suspect]
     Active Substance: INFLIXIMAB-DYYB
     Dosage: 10 MG/KG, EVERY 6 WEEKS
     Route: 042
     Dates: start: 20221210
  25. INFLECTRA [Suspect]
     Active Substance: INFLIXIMAB-DYYB
     Dosage: 10 MG/KG, EVERY 6 WEEKS
     Route: 042
     Dates: start: 20230110, end: 20230110
  26. INFLECTRA [Suspect]
     Active Substance: INFLIXIMAB-DYYB
     Dosage: 10 MG/KG, EVERY 6 WEEKS
     Route: 042
     Dates: start: 20230627
  27. INFLECTRA [Suspect]
     Active Substance: INFLIXIMAB-DYYB
     Dosage: 10 MG/KG (630 MG), EVERY 6 WEEKS
     Route: 042
     Dates: start: 20230808
  28. INFLECTRA [Suspect]
     Active Substance: INFLIXIMAB-DYYB
     Dosage: 10 MG/KG (630 MG), EVERY 6 WEEKS
     Route: 042
     Dates: start: 20230919
  29. INFLECTRA [Suspect]
     Active Substance: INFLIXIMAB-DYYB
     Dosage: 10 MG/KG (630 MG), EVERY 6 WEEKS
     Route: 042
     Dates: start: 20231031
  30. INFLECTRA [Suspect]
     Active Substance: INFLIXIMAB-DYYB
     Dosage: 640 MG, EVERY 6 WEEKS
     Route: 042
     Dates: start: 20231213
  31. INFLECTRA [Suspect]
     Active Substance: INFLIXIMAB-DYYB
     Dosage: 10 MG/KG, EVERY 6 WEEK
     Route: 042
     Dates: start: 20240123
  32. INFLECTRA [Suspect]
     Active Substance: INFLIXIMAB-DYYB
     Dosage: 10 MG/KG, EVERY 6 WEEK (640 MG, AFTER 6 WEEKS AND 1 DAY)
     Route: 042
     Dates: start: 20240306
  33. INFLECTRA [Suspect]
     Active Substance: INFLIXIMAB-DYYB
     Dosage: 640 MG, 6 WEEKS AND 2 DAY
     Route: 042
     Dates: start: 20240419
  34. INFLECTRA [Suspect]
     Active Substance: INFLIXIMAB-DYYB
     Dosage: 630MG AFTER 5 WEEKS AND 6 DAYS
     Route: 042
     Dates: start: 20240530
  35. CALCIUM [Concomitant]
     Active Substance: CALCIUM
     Dosage: 1 DF, DOSAGE IS UNKNOWN
     Route: 042
  36. CORTISONE [Concomitant]
     Active Substance: CORTISONE
     Indication: Skin plaque
     Dosage: 1 DF, DOSAGE IS UNKNOWN
     Route: 065
  37. CHOLECALCIFEROL [Concomitant]
     Active Substance: CHOLECALCIFEROL
     Dosage: 1 DF, WEEKLY, DOSE UNKNOWN
     Route: 048

REACTIONS (23)
  - Drug level above therapeutic [Unknown]
  - Uveitis [Recovered/Resolved]
  - Drug ineffective [Unknown]
  - Mouth ulceration [Unknown]
  - Skin plaque [Not Recovered/Not Resolved]
  - Rash [Not Recovered/Not Resolved]
  - Stress [Unknown]
  - Psoriasis [Not Recovered/Not Resolved]
  - Scab [Not Recovered/Not Resolved]
  - Erythema [Not Recovered/Not Resolved]
  - Skin lesion [Unknown]
  - COVID-19 [Recovered/Resolved]
  - Eczema [Not Recovered/Not Resolved]
  - Abscess [Recovered/Resolved]
  - Aphthous ulcer [Not Recovered/Not Resolved]
  - Fistula [Recovered/Resolved]
  - Condition aggravated [Recovered/Resolved]
  - Erythema nodosum [Recovered/Resolved]
  - Arthralgia [Recovered/Resolved]
  - Off label use [Unknown]
  - Off label use [Unknown]
  - Intentional product use issue [Unknown]
  - Inappropriate schedule of product administration [Unknown]

NARRATIVE: CASE EVENT DATE: 20200101
